FAERS Safety Report 19687533 (Version 1)
Quarter: 2021Q3

REPORT INFORMATION
  Report Type: Spontaneous
  Country: US (occurrence: US)
  Receive Date: 20210811
  Receipt Date: 20210811
  Transmission Date: 20211014
  Serious: No
  Sender: FDA-Public Use
  Company Number: US-PFIZER INC-2021535911

PATIENT
  Age: 39 Year
  Sex: Female

DRUGS (2)
  1. IBRANCE [Suspect]
     Active Substance: PALBOCICLIB
     Dosage: 125 MG
     Dates: start: 20210503
  2. LETROZOLE. [Concomitant]
     Active Substance: LETROZOLE
     Dosage: UNK

REACTIONS (8)
  - Taste disorder [Unknown]
  - Nasopharyngitis [Unknown]
  - Stomatitis [Unknown]
  - Paraesthesia [Unknown]
  - Hot flush [Unknown]
  - Hypoaesthesia [Unknown]
  - Breast pain [Unknown]
  - White blood cell count decreased [Not Recovered/Not Resolved]
